FAERS Safety Report 11182135 (Version 6)
Quarter: 2015Q4

REPORT INFORMATION
  Report Type: Report from Study
  Country: US (occurrence: US)
  Receive Date: 20150611
  Receipt Date: 20151204
  Transmission Date: 20160304
  Serious: Yes (Death, Hospitalization)
  Sender: FDA-Public Use
  Company Number: US-ACTELION-A-US2015-118251

PATIENT
  Age: 32 Year
  Sex: Female

DRUGS (4)
  1. VELETRI [Suspect]
     Active Substance: EPOPROSTENOL
     Indication: PULMONARY ARTERIAL HYPERTENSION
     Dosage: 13 NG/KG, PER MIN
     Route: 042
     Dates: start: 20150414
  2. VELETRI [Suspect]
     Active Substance: EPOPROSTENOL
     Dosage: 17 NG/KG, PER MIN
     Route: 042
  3. VELETRI [Suspect]
     Active Substance: EPOPROSTENOL
     Dosage: 14 NG/KG, PER MIN
     Route: 042
  4. VELETRI [Suspect]
     Active Substance: EPOPROSTENOL
     Dosage: 12 NG/KG, PER MIN
     Route: 042

REACTIONS (16)
  - Peripheral swelling [Unknown]
  - Erythema [Unknown]
  - Swelling face [Unknown]
  - Pharyngitis [Unknown]
  - Eye inflammation [Unknown]
  - Rash [Unknown]
  - Catheter site inflammation [Unknown]
  - Lung disorder [Unknown]
  - Productive cough [Unknown]
  - Pulmonary oedema [Unknown]
  - Asthenia [Unknown]
  - Death [Fatal]
  - Catheter site erythema [Unknown]
  - Fluid retention [Unknown]
  - Flushing [Unknown]
  - Catheter site pruritus [Unknown]

NARRATIVE: CASE EVENT DATE: 20151122
